FAERS Safety Report 21245411 (Version 1)
Quarter: 2022Q3

REPORT INFORMATION
  Report Type: Spontaneous
  Country: PT (occurrence: PT)
  Receive Date: 20220824
  Receipt Date: 20220824
  Transmission Date: 20221026
  Serious: Yes (Hospitalization, Other)
  Sender: FDA-Public Use
  Company Number: PT-SUN PHARMACEUTICAL INDUSTRIES LTD-2021R1-296870

PATIENT
  Age: 45 Year
  Sex: Female

DRUGS (2)
  1. BUPROPION [Suspect]
     Active Substance: BUPROPION
     Indication: Obesity
     Dosage: UNK
     Route: 065
  2. NALTREXONE [Suspect]
     Active Substance: NALTREXONE
     Indication: Obesity
     Dosage: UNK
     Route: 065

REACTIONS (2)
  - Type IV hypersensitivity reaction [Recovering/Resolving]
  - Psoriasis [Recovering/Resolving]
